FAERS Safety Report 14540474 (Version 10)
Quarter: 2018Q3

REPORT INFORMATION
  Report Type: Report from Study
  Country: CA (occurrence: CA)
  Receive Date: 20180216
  Receipt Date: 20180709
  Transmission Date: 20181010
  Serious: Yes (Hospitalization, Other)
  Sender: FDA-Public Use
  Company Number: CA-GLAXOSMITHKLINE-CA2017GSK173600

PATIENT
  Age: 69 Year
  Sex: Female

DRUGS (5)
  1. MEPOLIZUMAB [Suspect]
     Active Substance: MEPOLIZUMAB
     Dosage: 100 MG, Z
     Route: 042
  2. MEPOLIZUMAB [Suspect]
     Active Substance: MEPOLIZUMAB
     Dosage: 100 MG, Z
     Route: 042
  3. MEPOLIZUMAB [Suspect]
     Active Substance: MEPOLIZUMAB
     Indication: ASTHMA
     Dosage: 100 MG, Z (MONTHLY)
     Route: 042
     Dates: start: 20170922
  4. MACROBID [Suspect]
     Active Substance: NITROFURANTOIN\NITROFURANTOIN MONOHYDRATE
     Indication: CYSTITIS
     Dosage: 100 MG, BID
     Dates: start: 20180530, end: 20180603
  5. MEPOLIZUMAB [Suspect]
     Active Substance: MEPOLIZUMAB
     Dosage: 100 MG, Z
     Route: 042

REACTIONS (20)
  - Gait disturbance [Unknown]
  - Drug ineffective [Unknown]
  - Sputum discoloured [Unknown]
  - Dyspnoea [Unknown]
  - Cough [Unknown]
  - Erythema [Not Recovered/Not Resolved]
  - Oxygen saturation decreased [Recovering/Resolving]
  - Pneumonia [Not Recovered/Not Resolved]
  - Restlessness [Recovered/Resolved]
  - Headache [Recovered/Resolved]
  - Blood pressure increased [Unknown]
  - Nausea [Unknown]
  - Scab [Not Recovered/Not Resolved]
  - Asthma [Unknown]
  - Nasopharyngitis [Recovered/Resolved]
  - Productive cough [Unknown]
  - Cystitis [Unknown]
  - Vomiting [Not Recovered/Not Resolved]
  - Adverse drug reaction [Unknown]
  - Urticaria [Unknown]

NARRATIVE: CASE EVENT DATE: 201711
